FAERS Safety Report 4504034-8 (Version None)
Quarter: 2004Q3

REPORT INFORMATION
  Report Type: 
  Country: None (occurrence: None)
  Receive Date: 20040927
  Receipt Date: 20040628
  Transmission Date: 20050211
  Serious: No
  Sender: FDA-Public Use
  Company Number: USA040671237

PATIENT
  Age: 43 Year
  Sex: Female
  Weight: 55 kg

DRUGS (3)
  1. STRATTERA [Suspect]
     Indication: ATTENTION DEFICIT/HYPERACTIVITY DISORDER
     Dosage: 40 MG DAY
     Dates: start: 20040501
  2. GINESENG [Concomitant]
  3. GINKOBA (GINKGO BILOBA EXTRACT) [Concomitant]

REACTIONS (2)
  - CRYING [None]
  - DELUSIONAL DISORDER, PERSECUTORY TYPE [None]
